FAERS Safety Report 5744008-2 (Version None)
Quarter: 2008Q2

REPORT INFORMATION
  Report Type: 
  Country: None (occurrence: None)
  Receive Date: 20080520
  Receipt Date: 20080515
  Transmission Date: 20081010
  Serious: Yes (Death, Other)
  Sender: FDA-Public Use
  Company Number: US-NOVOPROD-275329

PATIENT
  Age: 65 Year
  Sex: Male

DRUGS (1)
  1. NOVOSEVEN [Suspect]
     Indication: HAEMORRHAGE
     Dosage: 35 UG/KG, UNK
     Route: 042

REACTIONS (2)
  - CARDIAC TAMPONADE [None]
  - DEVICE OCCLUSION [None]
